FAERS Safety Report 5910765-5 (Version None)
Quarter: 2008Q4

REPORT INFORMATION
  Report Type: 
  Country: None (occurrence: None)
  Receive Date: 20081007
  Receipt Date: 20080421
  Transmission Date: 20090506
  Serious: No
  Sender: FDA-Public Use
  Company Number: US-ASTRAZENECA-2008UW08130

PATIENT
  Age: 47 Year
  Sex: Female
  Weight: 59 kg

DRUGS (2)
  1. ARIMIDEX [Suspect]
     Indication: BREAST CANCER
     Route: 048
     Dates: start: 20080201
  2. TAMOXIFEN CITRATE [Concomitant]

REACTIONS (7)
  - ARTHRALGIA [None]
  - HOT FLUSH [None]
  - MUSCLE SPASMS [None]
  - NIGHT SWEATS [None]
  - PHOTOSENSITIVITY REACTION [None]
  - PSYCHOMOTOR SKILLS IMPAIRED [None]
  - WEIGHT INCREASED [None]
